FAERS Safety Report 7739466-8 (Version None)
Quarter: 2011Q3

REPORT INFORMATION
  Report Type: 
  Country: None (occurrence: None)
  Receive Date: 20110909
  Receipt Date: 20110830
  Transmission Date: 20111222
  Serious: Yes (Other)
  Sender: FDA-Public Use
  Company Number: ZA-JNJFOC-20110902685

PATIENT
  Age: 45 Year
  Sex: Female

DRUGS (1)
  1. TRAMADOL HYDROCHLORIDE/ACETAMINOPHEN [Suspect]
     Indication: NECK PAIN
     Dosage: 2 TABLETS EVERY 4-6 HOURLY
     Route: 048

REACTIONS (9)
  - HEADACHE [None]
  - DISORIENTATION [None]
  - SWOLLEN TONGUE [None]
  - SENSORY DISTURBANCE [None]
  - FEELING ABNORMAL [None]
  - PARAESTHESIA [None]
  - FORMICATION [None]
  - HYPOAESTHESIA [None]
  - HYPOKINESIA [None]
